FAERS Safety Report 9246005 (Version 1)
Quarter: 2013Q2

REPORT INFORMATION
  Report Type: Spontaneous
  Country: US (occurrence: US)
  Receive Date: 20130422
  Receipt Date: 20130422
  Transmission Date: 20140414
  Serious: No
  Sender: FDA-Public Use
  Company Number: US-BAYER-2013-050487

PATIENT
  Sex: Female

DRUGS (2)
  1. ALEVE CAPLET [Suspect]
     Indication: MYALGIA
     Dosage: 2 DF, QD
     Route: 048
  2. ALEVE CAPLET [Suspect]
     Indication: ARTHRALGIA

REACTIONS (1)
  - Incorrect drug administration duration [None]
